FAERS Safety Report 10135572 (Version 1)
Quarter: 2014Q2

REPORT INFORMATION
  Report Type: Spontaneous
  Country: JP (occurrence: JP)
  Receive Date: 20140428
  Receipt Date: 20140428
  Transmission Date: 20141212
  Serious: Yes (Hospitalization)
  Sender: FDA-Public Use
  Company Number: JP-ABBVIE-14P-087-1227924-00

PATIENT
  Age: 44 Year
  Sex: 0

DRUGS (3)
  1. HUMIRA [Suspect]
     Indication: CROHN^S DISEASE
     Route: 058
     Dates: start: 20131004, end: 20131004
  2. HUMIRA [Suspect]
     Dates: start: 20131018, end: 20131018
  3. HUMIRA [Suspect]
     Dates: start: 20131101, end: 20140404

REACTIONS (1)
  - Melaena [Recovered/Resolved]
